FAERS Safety Report 12831998 (Version 1)
Quarter: 2016Q4

REPORT INFORMATION
  Report Type: Spontaneous
  Country: US (occurrence: US)
  Receive Date: 20161010
  Receipt Date: 20161010
  Transmission Date: 20170207
  Serious: Yes (Other)
  Sender: FDA-Public Use
  Company Number: US-BAUSCH-BL-2016-024611

PATIENT
  Age: 45 Year
  Sex: Female
  Weight: 56.75 kg

DRUGS (1)
  1. ZYCLARA [Suspect]
     Active Substance: IMIQUIMOD
     Indication: PRECANCEROUS SKIN LESION
     Route: 061
     Dates: start: 20160923, end: 20160930

REACTIONS (3)
  - Tongue blistering [Recovering/Resolving]
  - Swollen tongue [Recovered/Resolved]
  - Oral mucosal blistering [Recovering/Resolving]

NARRATIVE: CASE EVENT DATE: 201609
